FAERS Safety Report 5901840-X (Version None)
Quarter: 2008Q3

REPORT INFORMATION
  Report Type: 
  Country: None (occurrence: None)
  Receive Date: 20080929
  Receipt Date: 20080919
  Transmission Date: 20090109
  Serious: Yes (Hospitalization)
  Sender: FDA-Public Use
  Company Number: US-JNJFOC-20080104236

PATIENT
  Sex: Female

DRUGS (13)
  1. ORTHO EVRA [Suspect]
     Indication: MENSTRUATION IRREGULAR
     Route: 062
  2. ORTHO EVRA [Suspect]
     Indication: CONTRACEPTION
     Route: 062
  3. LORATADINE [Concomitant]
  4. QVAR 40 [Concomitant]
  5. FLUTICASONE PROPIONATE [Concomitant]
  6. SINGULAIR [Concomitant]
  7. TIZANIDINE HCL [Concomitant]
  8. AMITRIPTYLINE HCL [Concomitant]
  9. PREVACID [Concomitant]
  10. ANTIVERT [Concomitant]
  11. PROVENTIL [Concomitant]
  12. ASTELIN [Concomitant]
  13. ALLERGY SHOT [Concomitant]

REACTIONS (2)
  - CEREBROVASCULAR ACCIDENT [None]
  - CONVULSION [None]
